FAERS Safety Report 4795683-0 (Version None)
Quarter: 2005Q4

REPORT INFORMATION
  Report Type: 
  Country: None (occurrence: None)
  Receive Date: 20051012
  Receipt Date: 20050523
  Transmission Date: 20060501
  Serious: Yes (Other)
  Sender: FDA-Public Use
  Company Number: PHEH2005US05838

PATIENT
  Age: 50 Year
  Sex: Female
  Weight: 52 kg

DRUGS (3)
  1. AREDIA [Suspect]
     Indication: METASTASES TO BONE
     Dosage: 90 MG, QMO
     Dates: start: 20010801, end: 20021001
  2. ZOMETA [Suspect]
     Indication: METASTASES TO BONE
     Dosage: 4 MG, QMO
     Dates: start: 20021001, end: 20030201
  3. TAMOXIFEN [Concomitant]
     Dates: start: 20010901

REACTIONS (11)
  - ACTINOMYCOSIS [None]
  - APICAL GRANULOMA [None]
  - DISEASE PROGRESSION [None]
  - GINGIVAL DISORDER [None]
  - IMPAIRED HEALING [None]
  - INFLAMMATION [None]
  - METASTASES TO BONE [None]
  - ORAL SURGERY [None]
  - OSTEOMYELITIS [None]
  - OSTEONECROSIS [None]
  - TOOTH EXTRACTION [None]
